APPROVED DRUG PRODUCT: OXYCODONE HYDROCHLORIDE
Active Ingredient: OXYCODONE HYDROCHLORIDE
Strength: 5MG
Dosage Form/Route: CAPSULE;ORAL
Application: N200534 | Product #001 | TE Code: AB
Applicant: GENUS LIFE SCIENCES INC
Approved: Oct 20, 2010 | RLD: Yes | RS: Yes | Type: RX